FAERS Safety Report 23957081 (Version 1)
Quarter: 2024Q2

REPORT INFORMATION
  Report Type: Report from Study
  Country: CA (occurrence: CA)
  Receive Date: 20240610
  Receipt Date: 20240610
  Transmission Date: 20240716
  Serious: Yes (Death)
  Sender: FDA-Public Use
  Company Number: CA-BEH-2024173282

PATIENT
  Age: 66 Year
  Sex: Male
  Weight: 55.556 kg

DRUGS (1)
  1. HIZENTRA [Suspect]
     Active Substance: HUMAN IMMUNOGLOBULIN G
     Indication: Secondary immunodeficiency
     Dosage: 18 G, QOW
     Route: 065
     Dates: start: 20200417

REACTIONS (1)
  - Death [Fatal]
